FAERS Safety Report 5468912-8 (Version None)
Quarter: 2007Q3

REPORT INFORMATION
  Report Type: 
  Country: None (occurrence: None)
  Receive Date: 20070926
  Receipt Date: 20070710
  Transmission Date: 20080115
  Serious: Yes (Other)
  Sender: FDA-Public Use
  Company Number: US-SHR-US-2007-015522

PATIENT
  Age: 1 Day
  Sex: Male
  Weight: 1.955 kg

DRUGS (7)
  1. BETAFERON [Suspect]
     Dates: start: 20060701, end: 20060715
  2. PRENATAL VITAMINS [Concomitant]
     Dates: start: 20060810
  3. FOLIC ACID [Concomitant]
     Dates: start: 20060731
  4. AMOXICILLIN [Concomitant]
     Dates: start: 20070215, end: 20070220
  5. MACROBID [Concomitant]
     Dates: start: 20070222, end: 20070227
  6. GYNAZOLE [Concomitant]
     Dates: start: 20070223, end: 20070223
  7. PREVACID [Concomitant]
     Dates: start: 20070104

REACTIONS (1)
  - FOETAL GROWTH RETARDATION [None]
